FAERS Safety Report 20342813 (Version 1)
Quarter: 2022Q1

REPORT INFORMATION
  Report Type: Spontaneous
  Country: CZ (occurrence: CZ)
  Receive Date: 20220117
  Receipt Date: 20220117
  Transmission Date: 20220423
  Serious: Yes (Hospitalization)
  Sender: FDA-Public Use
  Company Number: CZ-LUPIN PHARMACEUTICALS INC.-2022-00372

PATIENT
  Age: 73 Year
  Sex: Male

DRUGS (3)
  1. POTASSIUM [Suspect]
     Active Substance: POTASSIUM
     Indication: Choroidal effusion
     Dosage: UNK
     Route: 048
  2. XALATAN [Suspect]
     Active Substance: LATANOPROST
     Indication: Choroidal effusion
     Dosage: UNK (STRENGTH: 0.005% ; APPLIED LOCALLY DAILY)
     Route: 061
  3. ACETAZOLAMIDE [Suspect]
     Active Substance: ACETAZOLAMIDE
     Indication: Choroidal effusion
     Dosage: UNK
     Route: 048

REACTIONS (1)
  - Drug ineffective [Unknown]
